FAERS Safety Report 6192935-7 (Version None)
Quarter: 2009Q2

REPORT INFORMATION
  Report Type: 
  Country: None (occurrence: None)
  Receive Date: 20090514
  Receipt Date: 20090428
  Transmission Date: 20091009
  Serious: Yes (Other)
  Sender: FDA-Public Use
  Company Number: B0573436A

PATIENT
  Age: 62 Year
  Sex: Female

DRUGS (3)
  1. LAMIVUDINE [Suspect]
     Indication: HEPATITIS B VIRUS TEST
  2. TACROLIMUS [Suspect]
  3. ADEFOVIR DIPIVOXIL KIT [Concomitant]

REACTIONS (8)
  - COMPLICATIONS OF TRANSPLANTED LIVER [None]
  - DRUG RESISTANCE [None]
  - HEPATITIS B [None]
  - HEPATITIS C [None]
  - INFECTION IN AN IMMUNOCOMPROMISED HOST [None]
  - LIVER ABSCESS [None]
  - VERTICAL INFECTION TRANSMISSION [None]
  - VIRAL MUTATION IDENTIFIED [None]
